FAERS Safety Report 6235927-1 (Version None)
Quarter: 2009Q2

REPORT INFORMATION
  Report Type: 
  Country: None (occurrence: None)
  Receive Date: 20090619
  Receipt Date: 20090608
  Transmission Date: 20091009
  Serious: Yes (Other)
  Sender: FDA-Public Use
  Company Number: PHHY2009GB17189

PATIENT
  Sex: Female

DRUGS (7)
  1. CLOZARIL [Suspect]
     Indication: SCHIZOPHRENIA
     Dosage: 12.5 MG, UNK
     Route: 048
     Dates: start: 20090430, end: 20090430
  2. ASPIRIN [Concomitant]
     Indication: CORONARY ARTERY DISEASE
     Dosage: 75 MG, UNK
     Route: 048
     Dates: start: 20071222
  3. LEVOTHYROXINE SODIUM [Concomitant]
     Indication: HYPOTHYROIDISM
     Dosage: 50 UG, UNK
     Route: 048
     Dates: start: 20080822
  4. ZOPICLONE [Concomitant]
     Indication: INSOMNIA
     Dosage: 75 MG, UNK
     Route: 048
     Dates: start: 20090508
  5. SODIUM [Concomitant]
     Indication: CONSTIPATION
     Dosage: 200 MG, BID
     Route: 048
     Dates: start: 20090131
  6. LACTULOSE [Concomitant]
     Indication: CONSTIPATION
     Dosage: 15 MG, BID
     Route: 048
     Dates: start: 20080131
  7. NUTRITION SUPPLEMENTS [Concomitant]

REACTIONS (6)
  - AKINESIA [None]
  - DISORIENTATION [None]
  - HYPOTENSION [None]
  - LETHARGY [None]
  - SEDATION [None]
  - SOMNOLENCE [None]
